FAERS Safety Report 25504880 (Version 2)
Quarter: 2025Q3

REPORT INFORMATION
  Report Type: Spontaneous
  Country: US (occurrence: US)
  Receive Date: 20250702
  Receipt Date: 20250905
  Transmission Date: 20251021
  Serious: No
  Sender: PFIZER
  Company Number: US-PFIZER INC-202500132295

PATIENT
  Age: 50 Year
  Sex: Male

DRUGS (1)
  1. CIBINQO [Suspect]
     Active Substance: ABROCITINIB
     Indication: Dermatitis contact
     Dosage: 200 MG, 1X/DAY (QD, 30 DAYS, 30 EACH)
     Route: 048

REACTIONS (4)
  - Condition aggravated [Recovering/Resolving]
  - Folliculitis [Unknown]
  - Off label use [Unknown]
  - Drug effective for unapproved indication [Unknown]
